FAERS Safety Report 14108478 (Version 1)
Quarter: 2017Q4

REPORT INFORMATION
  Report Type: Spontaneous
  Country: GB (occurrence: GB)
  Receive Date: 20171019
  Receipt Date: 20171019
  Transmission Date: 20180321
  Serious: Yes (Death)
  Sender: FDA-Public Use
  Company Number: GB-MYLANLABS-2017M1066880

PATIENT
  Age: 38 Year
  Sex: Male
  Weight: 64 kg

DRUGS (1)
  1. CLOZARIL [Suspect]
     Active Substance: CLOZAPINE
     Indication: SCHIZOPHRENIA
     Dosage: UNK, QD
     Route: 048
     Dates: start: 19990303, end: 20071202

REACTIONS (2)
  - Memory impairment [Fatal]
  - Disorientation [Fatal]

NARRATIVE: CASE EVENT DATE: 19990403
